FAERS Safety Report 5069405-2 (Version None)
Quarter: 2006Q3

REPORT INFORMATION
  Report Type: 
  Country: None (occurrence: None)
  Receive Date: 20060714
  Receipt Date: 20060324
  Transmission Date: 20061208
  Serious: No
  Sender: FDA-Public Use
  Company Number: 2006SP001404

PATIENT
  Age: 66 Year
  Sex: Female

DRUGS (2)
  1. LUNESTA [Suspect]
     Dosage: 1 MG;HS;ORAL
     Route: 048
  2. ANTI-ASTHMATICS [Concomitant]

REACTIONS (3)
  - DRUG INEFFECTIVE [None]
  - HEADACHE [None]
  - MIDDLE INSOMNIA [None]
